FAERS Safety Report 23483196 (Version 1)
Quarter: 2024Q1

REPORT INFORMATION
  Report Type: Spontaneous
  Country: GB (occurrence: GB)
  Receive Date: 20240205
  Receipt Date: 20240205
  Transmission Date: 20240410
  Serious: Yes (Other)
  Sender: FDA-Public Use
  Company Number: None

PATIENT
  Age: 61 Year
  Sex: Female
  Weight: 79 kg

DRUGS (11)
  1. AMLODIPINE [Suspect]
     Active Substance: AMLODIPINE BESYLATE
     Indication: Product used for unknown indication
     Dosage: 1 DOSAGE FORM, QD
     Route: 065
     Dates: start: 20230524
  2. UMECLIDINIUM BROMIDE\VILANTEROL TRIFENATATE [Concomitant]
     Active Substance: UMECLIDINIUM BROMIDE\VILANTEROL TRIFENATATE
     Dosage: 1 DOSAGE FORM, QD
     Route: 055
     Dates: start: 20230524
  3. ATORVASTATIN [Concomitant]
     Active Substance: ATORVASTATIN
     Dosage: 1 DOSAGE FORM, QD (AT NIGHT. IF THIS IS THE FIRST YEAR OF)
     Route: 065
     Dates: start: 20230524
  4. BECONASE AQ [Concomitant]
     Active Substance: BECLOMETHASONE DIPROPIONATE MONOHYDRATE
     Dosage: 2 DOSAGE FORM, BID (ONE SPRAY TO BE USED IN EACH NOSTRIL TWICE A DAY)
     Route: 065
     Dates: start: 20240110
  5. CITALOPRAM [Concomitant]
     Active Substance: CITALOPRAM HYDROBROMIDE
     Dosage: 1 DOSAGE FORM, QD
     Route: 065
     Dates: start: 20230524
  6. POLYETHYLENE GLYCOL 3350\POTASSIUM CHLORIDE\SODIUM BICARBONATE\SODIUM [Concomitant]
     Active Substance: POLYETHYLENE GLYCOL 3350\POTASSIUM CHLORIDE\SODIUM BICARBONATE\SODIUM CHLORIDE
     Dosage: DISSOLVE CONTENTS OF ONE SACHET IN HALF A GLASS...
     Route: 065
     Dates: start: 20230524
  7. LORATADINE [Concomitant]
     Active Substance: LORATADINE
     Dosage: 1 DOSAGE FORM (ONE TO BE TAKEN DAILY WHEN REQUIRED)
     Route: 065
     Dates: start: 20230524
  8. MOMETASONE [Concomitant]
     Active Substance: MOMETASONE
     Dosage: 1 DOSAGE FORM (APPLY DAILY WHEN REQUIRED AS DIRECTED)
     Route: 065
     Dates: start: 20230524
  9. Vagirux [Concomitant]
     Dosage: 1 DOSAGE FORM, BID (ONE TO BE INSERTED TWICE A WEEK)
     Route: 065
     Dates: start: 20230524
  10. VENTOLIN [Concomitant]
     Active Substance: ALBUTEROL SULFATE
     Dosage: UNK UNK, QID (ONE OR TWO DOSES/PUFFS TO BE INHALED FOUR TIMES)
     Route: 055
     Dates: start: 20230524
  11. Zerobase [Concomitant]
     Dosage: UNK (USE AS DIRECTED)
     Route: 065
     Dates: start: 20230524

REACTIONS (1)
  - Joint swelling [Recovering/Resolving]
